FAERS Safety Report 12359034 (Version 1)
Quarter: 2016Q2

REPORT INFORMATION
  Report Type: Spontaneous
  Country: AU (occurrence: AU)
  Receive Date: 20160512
  Receipt Date: 20160512
  Transmission Date: 20160815
  Serious: Yes (Death)
  Sender: FDA-Public Use
  Company Number: AU-BTG INTERNATIONAL LTD-BTG00688

PATIENT

DRUGS (1)
  1. DIGIFAB [Suspect]
     Active Substance: OVINE DIGOXIN IMMUNE FAB
     Indication: TOXICITY TO VARIOUS AGENTS
     Dosage: 40 MG, ADMINISTERED OVER 20-30 MINUTES
     Route: 042

REACTIONS (2)
  - Respiratory failure [Fatal]
  - Cardiac failure [Fatal]
